FAERS Safety Report 9193848 (Version 1)
Quarter: 2013Q1

REPORT INFORMATION
  Report Type: Spontaneous
  Country: US (occurrence: US)
  Receive Date: 20130327
  Receipt Date: 20130327
  Transmission Date: 20140127
  Serious: Yes (Hospitalization)
  Sender: FDA-Public Use
  Company Number: US-PFIZER INC-2013095233

PATIENT
  Age: 75 Year
  Sex: Female
  Weight: 59 kg

DRUGS (8)
  1. PREMARIN [Suspect]
     Indication: HORMONE REPLACEMENT THERAPY
     Dosage: 0.625 MG, 1X/DAY
     Route: 048
     Dates: start: 1975, end: 201207
  2. TRAMADOL HCL [Suspect]
     Indication: TREMOR
     Dosage: 250 MG, 2X/DAY
     Dates: start: 1996
  3. PROPRANOLOL [Suspect]
     Indication: TREMOR
     Dosage: 40 MG, 2X/DAY
  4. AMLODIPINE [Concomitant]
     Indication: HYPERTENSION
     Dosage: 10 MG, 1X/DAY
  5. LOSARTAN [Concomitant]
     Indication: HYPERTENSION
     Dosage: 50 MG, 2X/DAY
  6. LOSARTAN [Concomitant]
     Indication: HEART RATE IRREGULAR
  7. ISOSORBIDE MONONITRATE [Concomitant]
     Dosage: 30 MG, 2X/DAY
     Dates: start: 1993
  8. HYDROCHLOROTHIAZIDE [Concomitant]
     Indication: DIURETIC THERAPY
     Dosage: 12.5 MG, 1X/DAY

REACTIONS (2)
  - Tremor [Unknown]
  - Hyperhidrosis [Recovered/Resolved]
